FAERS Safety Report 8695126 (Version 2)
Quarter: 2013Q4

REPORT INFORMATION
  Report Type: Spontaneous
  Country: US (occurrence: US)
  Receive Date: 20120731
  Receipt Date: 20131106
  Transmission Date: 20140711
  Serious: Yes (Hospitalization)
  Sender: FDA-Public Use
  Company Number: US-009507513-1207USA010620

PATIENT
  Age: 58 Year
  Sex: Male

DRUGS (4)
  1. ZOCOR [Suspect]
     Dosage: 20 MG, QD
     Route: 048
  2. LEVOFLOXACIN [Suspect]
     Dosage: 750 MG, QD
  3. AMOXICILLIN (+) CLAVULANATE POTASSIUM [Concomitant]
  4. CEFDINIR [Concomitant]

REACTIONS (7)
  - Arthritis bacterial [Unknown]
  - Weight decreased [Unknown]
  - Drug ineffective [Unknown]
  - Osteoarthritis [Unknown]
  - Tendon disorder [Unknown]
  - Bone disorder [Unknown]
  - Inflammation [Unknown]
